FAERS Safety Report 6262971-0 (Version None)
Quarter: 2009Q3

REPORT INFORMATION
  Report Type: 
  Country: None (occurrence: None)
  Receive Date: 20090710
  Receipt Date: 20070821
  Transmission Date: 20100115
  Serious: Yes (Other)
  Sender: FDA-Public Use
  Company Number: US-ASTRAZENECA-2006UW21282

PATIENT
  Age: 19006 Day
  Sex: Female
  Weight: 93 kg

DRUGS (17)
  1. SEROQUEL [Suspect]
     Route: 048
     Dates: start: 20030101
  2. SEROQUEL [Suspect]
     Dosage: 100-800 MG
     Route: 048
  3. DIAZAPAM [Concomitant]
  4. VERAPAMIL [Concomitant]
  5. LISINOPRIL [Concomitant]
  6. PREVACID [Concomitant]
  7. ELAVIL [Concomitant]
  8. LIPITOR [Concomitant]
  9. VALIUM [Concomitant]
  10. LOPRESSOR [Concomitant]
  11. DILANTIN [Concomitant]
  12. LEXAPRO [Concomitant]
  13. HALDOL [Concomitant]
  14. CYMBALTA [Concomitant]
  15. RESTORIL [Concomitant]
  16. COGENTIN [Concomitant]
  17. TYLENOL [Concomitant]

REACTIONS (2)
  - DIABETES MELLITUS [None]
  - NEUROPATHY PERIPHERAL [None]
